FAERS Safety Report 16864539 (Version 1)
Quarter: 2019Q3

REPORT INFORMATION
  Report Type: Report from Study
  Country: BR (occurrence: BR)
  Receive Date: 20190928
  Receipt Date: 20190928
  Transmission Date: 20191005
  Serious: Yes (Hospitalization, Disabling, Other)
  Sender: FDA-Public Use
  Company Number: PHHY2018BR030472

PATIENT
  Age: 47 Year
  Sex: Female
  Weight: 61 kg

DRUGS (5)
  1. MIFLASONE [Suspect]
     Active Substance: BECLOMETHASONE DIPROPIONATE
     Indication: ASTHMA
     Dosage: 1 ASPIRATION, TID (STARTED 2 YEARS AGO)
     Route: 055
  2. AEROLIN [Concomitant]
     Active Substance: ALBUTEROL
     Indication: ASTHMA
     Dosage: ONE ASPIRATION, BID (STARTED MORE THAN 3 YEAR AGO)
     Route: 055
  3. FORASEQ [Suspect]
     Active Substance: BUDESONIDE\FORMOTEROL FUMARATE
     Indication: ASTHMA
     Dosage: 1 ASPIRATION, TID (USING SINCE 16 YEARS OLD)
     Route: 055
  4. XOLAIR [Suspect]
     Active Substance: OMALIZUMAB
     Indication: ASTHMA
     Dosage: 3 DF (450 MG), QMO
     Route: 058
     Dates: start: 20180516
  5. CLENIL [Concomitant]
     Active Substance: BECLOMETHASONE DIPROPIONATE
     Indication: ASTHMA
     Dosage: ONE ASPIRATION, BID (STARTED MORE THAN 3 YEAR AGO)
     Route: 055

REACTIONS (29)
  - Lung infection [Recovering/Resolving]
  - Abdominal distension [Unknown]
  - Sensitivity to weather change [Recovering/Resolving]
  - Oropharyngeal pain [Unknown]
  - Nasal congestion [Unknown]
  - Candida infection [Unknown]
  - Drug ineffective [Unknown]
  - Dust allergy [Unknown]
  - Pain [Unknown]
  - Productive cough [Unknown]
  - Uterine leiomyoma [Unknown]
  - Cervical cyst [Unknown]
  - Gait inability [Unknown]
  - Headache [Unknown]
  - Pulmonary congestion [Recovering/Resolving]
  - Dyspnoea [Unknown]
  - Dysphonia [Unknown]
  - Throat tightness [Unknown]
  - Nasopharyngitis [Unknown]
  - Abdominal pain [Unknown]
  - Asthma [Unknown]
  - Influenza [Recovering/Resolving]
  - Underweight [Unknown]
  - Wheezing [Unknown]
  - Kidney infection [Unknown]
  - Nephrolithiasis [Unknown]
  - Visual impairment [Unknown]
  - Rhinorrhoea [Unknown]
  - Depression [Unknown]

NARRATIVE: CASE EVENT DATE: 201805
